FAERS Safety Report 10163656 (Version 2)
Quarter: 2014Q2

REPORT INFORMATION
  Report Type: Report from Study
  Country: DE (occurrence: NL)
  Receive Date: 20140509
  Receipt Date: 20140527
  Transmission Date: 20141212
  Serious: Yes (Death, Hospitalization, Other)
  Sender: FDA-Public Use
  Company Number: DE-ACTELION-A-US2009-98287

PATIENT
  Age: 63 Year
  Sex: Female

DRUGS (5)
  1. VENTAVIS [Suspect]
     Indication: PRODUCT USED FOR UNKNOWN INDICATION
     Dosage: 2.5 MCG, 9 TIMES DAILY
     Route: 055
     Dates: start: 20081110, end: 20100408
  2. TILDIEM [Suspect]
     Indication: ARRHYTHMIA
     Dosage: UNK
     Dates: start: 201002
  3. MARCOUMAR [Concomitant]
  4. REVATIO [Concomitant]
  5. MORFINE [Concomitant]

REACTIONS (20)
  - Pulmonary arterial hypertension [Fatal]
  - Arrhythmia [Unknown]
  - Arrhythmia [Unknown]
  - Circulatory collapse [Unknown]
  - Pulmonary hypertension [Unknown]
  - Pulmonary hypertension [Unknown]
  - Dyspnoea [Unknown]
  - Headache [Unknown]
  - Pain in jaw [Unknown]
  - Erythema [Unknown]
  - Feeling hot [Unknown]
  - Head discomfort [Unknown]
  - Drug ineffective [Unknown]
  - Ejection fraction decreased [Unknown]
  - Flushing [Unknown]
  - Fatigue [Unknown]
  - Nasopharyngitis [Unknown]
  - Malaise [Unknown]
  - Drug hypersensitivity [Unknown]
  - Poor quality sleep [Unknown]
